FAERS Safety Report 9319489 (Version 7)
Quarter: 2016Q4

REPORT INFORMATION
  Report Type: Spontaneous
  Country: US (occurrence: US)
  Receive Date: 20130530
  Receipt Date: 20161108
  Transmission Date: 20170207
  Serious: No
  Sender: FDA-Public Use
  Company Number: US-GLAXOSMITHKLINE-A0991346A

PATIENT
  Age: 56 Year
  Sex: Female

DRUGS (9)
  1. REVATIO [Concomitant]
     Active Substance: SILDENAFIL CITRATE
  2. FLOLAN [Suspect]
     Active Substance: EPOPROSTENOL SODIUM
     Dosage: UNK
     Dates: start: 20040930
  3. FLOLAN [Suspect]
     Active Substance: EPOPROSTENOL SODIUM
     Dosage: UNK
     Dates: start: 20040930
  4. FLOLAN [Suspect]
     Active Substance: EPOPROSTENOL SODIUM
     Dosage: 46.5 NG/KG/MIN, CONC 60000 NG/ML, PUMP RATE 84 ML/DAY, VIAL STRENGTH 1.5 MG
  5. FLOLAN [Suspect]
     Active Substance: EPOPROSTENOL SODIUM
     Dosage: 46 DF, UNK
  6. FLOLAN [Suspect]
     Active Substance: EPOPROSTENOL SODIUM
     Dosage: UNK
     Dates: start: 20040930
  7. FLOLAN [Suspect]
     Active Substance: EPOPROSTENOL SODIUM
     Dosage: 46.5 NG/KG/MIN, CONTINOUS
     Dates: start: 20040930
  8. COUMADIN [Concomitant]
     Active Substance: WARFARIN SODIUM
  9. FLOLAN [Suspect]
     Active Substance: EPOPROSTENOL SODIUM
     Indication: PULMONARY ARTERIAL HYPERTENSION
     Dosage: 38.5 NG/KG/MIN, CONCENTRATION  60,000 NG/ML, VIAL STRENGTH 1.5 MG37.5 NG/KG/MIN45.1 NG/KG/MIN, [...]
     Route: 042
     Dates: start: 20040930

REACTIONS (12)
  - Exercise tolerance decreased [Unknown]
  - Feeling abnormal [Unknown]
  - Emergency care examination [Unknown]
  - Dyspnoea [Unknown]
  - Contusion [Unknown]
  - Hypotension [Unknown]
  - Dizziness [Unknown]
  - Heart rate increased [Unknown]
  - Feeling hot [Unknown]
  - Device malfunction [Unknown]
  - Sinusitis [Unknown]
  - Pain [Unknown]

NARRATIVE: CASE EVENT DATE: 20150807
